FAERS Safety Report 18012523 (Version 1)
Quarter: 2020Q3

REPORT INFORMATION
  Report Type: Spontaneous
  Country: FR (occurrence: FR)
  Receive Date: 20200713
  Receipt Date: 20200713
  Transmission Date: 20201103
  Serious: Yes (Hospitalization)
  Sender: FDA-Public Use
  Company Number: FR-MYLANLABS-2020M1062882

PATIENT
  Age: 66 Year
  Sex: Female

DRUGS (9)
  1. FEMARA [Suspect]
     Active Substance: LETROZOLE
     Indication: BREAST CANCER
     Dosage: 2.5 MILLIGRAM, QD
     Route: 048
     Dates: start: 20191130
  2. SMECTA [Suspect]
     Active Substance: MONTMORILLONITE
     Indication: DIARRHOEA
     Dosage: 1 ? 3 SACHETS PAR JOUR
     Route: 048
     Dates: start: 20191130
  3. XGEVA [Suspect]
     Active Substance: DENOSUMAB
     Indication: METASTATIC BONE DISEASE PROPHYLAXIS
     Dosage: 120 MILLIGRAM, MONTHLY
     Route: 058
     Dates: start: 20191130
  4. VERZENIO [Suspect]
     Active Substance: ABEMACICLIB
     Indication: BREAST CANCER
     Dosage: 300 MILLIGRAM, QD
     Route: 048
     Dates: start: 20191130
  5. DAFALGAN CODEINE [Concomitant]
     Active Substance: ACETAMINOPHEN\CODEINE PHOSPHATE
     Indication: PAIN
     Dosage: 3 ? 4/JOUR
     Route: 048
  6. LOPERAMIDE [Suspect]
     Active Substance: LOPERAMIDE
     Indication: DIARRHOEA
     Dosage: 1 APR?S CHAQUE SELLE LIQUIDE (MAX 4/JOUR)
     Route: 048
     Dates: start: 20191130
  7. CALCIUM CARBONATE. [Suspect]
     Active Substance: CALCIUM CARBONATE
     Indication: METASTATIC BONE DISEASE PROPHYLAXIS
     Dosage: 500 MILLIGRAM, QD
     Route: 048
     Dates: start: 20191130
  8. IRBESARTAN. [Concomitant]
     Active Substance: IRBESARTAN
     Indication: HYPERTENSION
     Dosage: 150 MG LE MATIN
     Route: 048
  9. ATENOLOL. [Concomitant]
     Active Substance: ATENOLOL
     Indication: HYPERTENSION
     Dosage: 50 MG MATIN ET SOIR
     Route: 048

REACTIONS (1)
  - Pulmonary embolism [Not Recovered/Not Resolved]

NARRATIVE: CASE EVENT DATE: 20200405
